FAERS Safety Report 8000707-3 (Version None)
Quarter: 2011Q4

REPORT INFORMATION
  Report Type: 
  Country: None (occurrence: None)
  Receive Date: 20111222
  Receipt Date: 20111212
  Transmission Date: 20120403
  Serious: Yes (Hospitalization)
  Sender: FDA-Public Use
  Company Number: CA-JNJFOC-20111207950

PATIENT
  Age: 69 Year
  Sex: Female
  Weight: 59 kg

DRUGS (8)
  1. APO-HYDROXYQUINE [Concomitant]
     Route: 048
  2. NIFEDIPINE [Concomitant]
     Route: 048
  3. PREDNISONE [Concomitant]
     Route: 048
  4. PLAVIX [Concomitant]
     Route: 048
  5. REMICADE [Suspect]
     Indication: RHEUMATOID ARTHRITIS
     Route: 042
     Dates: start: 20040212
  6. AZATHIOPRINE [Concomitant]
     Route: 048
  7. METOPROLOL TARTRATE [Concomitant]
     Route: 048
  8. REMICADE [Suspect]
     Dosage: 54TH INFUSION
     Route: 042
     Dates: start: 20111212

REACTIONS (2)
  - MYOCARDIAL INFARCTION [None]
  - PALPITATIONS [None]
